FAERS Safety Report 20843628 (Version 1)
Quarter: 2022Q2

REPORT INFORMATION
  Report Type: Spontaneous
  Country: AU (occurrence: AU)
  Receive Date: 20220518
  Receipt Date: 20220518
  Transmission Date: 20220721
  Serious: Yes (Death, Other)
  Sender: FDA-Public Use
  Company Number: None

PATIENT
  Age: 32 Year
  Sex: Male

DRUGS (2)
  1. ADALIMUMAB [Suspect]
     Active Substance: ADALIMUMAB
     Indication: Immunodeficiency common variable
     Dosage: UNKNOWN
     Route: 065
     Dates: start: 2021
  2. HUMAN IMMUNOGLOBULIN G [Concomitant]
     Active Substance: HUMAN IMMUNOGLOBULIN G
     Indication: Product used for unknown indication
     Route: 042

REACTIONS (8)
  - Septic shock [Fatal]
  - Bronchopulmonary aspergillosis [Unknown]
  - Respiratory tract infection [Unknown]
  - Immunodeficiency common variable [Unknown]
  - Pneumonia cytomegaloviral [Unknown]
  - Colitis microscopic [Unknown]
  - Helicobacter infection [Unknown]
  - Off label use [Unknown]

NARRATIVE: CASE EVENT DATE: 20210101
